FAERS Safety Report 21334307 (Version 1)
Quarter: 2022Q3

REPORT INFORMATION
  Report Type: Spontaneous
  Country: US (occurrence: US)
  Receive Date: 20220914
  Receipt Date: 20220914
  Transmission Date: 20221027
  Serious: Yes (Other)
  Sender: FDA-Public Use
  Company Number: US-SLATE RUN PHARMACEUTICALS-22US001318

PATIENT

DRUGS (12)
  1. AZITHROMYCIN [Suspect]
     Active Substance: AZITHROMYCIN
     Indication: Pneumonia
     Dosage: UNK
     Dates: start: 2021
  2. OXYGEN [Concomitant]
     Active Substance: OXYGEN
     Indication: Hypoxia
     Dosage: UNK
     Route: 045
     Dates: start: 2021
  3. CEFTRIAXONE [Concomitant]
     Active Substance: CEFTRIAXONE
     Indication: Pneumonia
     Dosage: UNK
     Dates: start: 2021
  4. DEXAMETHASONE [Concomitant]
     Active Substance: DEXAMETHASONE
     Indication: Pneumonia
     Dosage: UNK
     Dates: start: 2021
  5. HYDROMORPHONE [Concomitant]
     Active Substance: HYDROMORPHONE
     Indication: Sedation
     Dosage: UNK
     Route: 042
     Dates: start: 2021
  6. DEXMEDETOMIDINE [Concomitant]
     Active Substance: DEXMEDETOMIDINE
     Indication: Sedation
     Dosage: UNK
     Route: 042
     Dates: start: 2021
  7. PROPOFOL [Concomitant]
     Active Substance: PROPOFOL
     Indication: Sedation
     Dosage: UNK
     Route: 042
     Dates: start: 2021
  8. NITRIC OXIDE [Concomitant]
     Active Substance: NITRIC OXIDE
     Indication: Product used for unknown indication
     Dosage: UNK
     Dates: start: 2021
  9. ARGATROBAN ACCORD [ARGATROBAN MONOHYDRATE] [Concomitant]
     Indication: Anticoagulant therapy
     Dosage: UNK
     Dates: start: 2021
  10. HEPARIN [Concomitant]
     Active Substance: HEPARIN SODIUM
     Indication: Anticoagulant therapy
     Dosage: AFTER DELIVERY
     Route: 042
     Dates: start: 2021
  11. HEPARIN [Concomitant]
     Active Substance: HEPARIN SODIUM
     Dosage: BEFORE DELIVERY
     Route: 042
  12. UNSPECIFIED INGREDIENT [Concomitant]
     Active Substance: UNSPECIFIED INGREDIENT
     Indication: Maternal therapy to enhance foetal lung maturity
     Dosage: UNK
     Dates: start: 2021

REACTIONS (10)
  - Respiratory failure [Recovering/Resolving]
  - Lung infiltration [Recovering/Resolving]
  - Low lung compliance [Recovering/Resolving]
  - Hypercapnia [Unknown]
  - Delirium [Unknown]
  - Anaemia [Unknown]
  - Haemoperitoneum [Recovered/Resolved]
  - Premature labour [Recovered/Resolved]
  - Agitation [Unknown]
  - Maternal exposure during pregnancy [Recovered/Resolved]

NARRATIVE: CASE EVENT DATE: 20210101
